FAERS Safety Report 10567320 (Version 2)
Quarter: 2015Q1

REPORT INFORMATION
  Report Type: Spontaneous
  Country: US (occurrence: US)
  Receive Date: 20141106
  Receipt Date: 20150106
  Transmission Date: 20150720
  Serious: Yes (Death)
  Sender: FDA-Public Use
  Company Number: US-009507513-1411USA000726

PATIENT
  Sex: Male

DRUGS (4)
  1. ISENTRESS [Suspect]
     Active Substance: RALTEGRAVIR POTASSIUM
     Indication: HIV INFECTION
     Dosage: 400 MG, BID
     Route: 048
     Dates: end: 20141201
  2. MORPHINE [Concomitant]
     Active Substance: MORPHINE
  3. HALDOL [Concomitant]
     Active Substance: HALOPERIDOL
  4. TRUVADA [Concomitant]
     Active Substance: EMTRICITABINE\TENOFOVIR DISOPROXIL FUMARATE

REACTIONS (3)
  - Emphysema [Fatal]
  - Condition aggravated [Fatal]
  - Dysphagia [Unknown]

NARRATIVE: CASE EVENT DATE: 2014
